FAERS Safety Report 18762050 (Version 1)
Quarter: 2021Q1

REPORT INFORMATION
  Report Type: Spontaneous
  Country: US (occurrence: US)
  Receive Date: 20210118
  Receipt Date: 20210118
  Transmission Date: 20210419
  Serious: Yes (Hospitalization)
  Sender: FDA-Public Use
  Company Number: None

PATIENT
  Sex: Female

DRUGS (7)
  1. METOPROL SUC ER [Concomitant]
     Active Substance: METOPROLOL SUCCINATE
  2. TACROLIMUS 1MG CAP [Suspect]
     Active Substance: TACROLIMUS
     Indication: RENAL TRANSPLANT
     Dosage: ?          OTHER DOSE:3?2 CAPS;OTHER FREQUENCY:QAM?QPM;?
     Route: 048
     Dates: start: 20190907
  3. MYCOPHENOLATE 250MG CAP [Suspect]
     Active Substance: MYCOPHENOLATE MOFETIL
     Indication: RENAL TRANSPLANT
     Route: 048
     Dates: start: 20190907
  4. ATORVASTATIN [Concomitant]
     Active Substance: ATORVASTATIN
  5. IBANDRONATE [Concomitant]
     Active Substance: IBANDRONATE SODIUM
  6. VALSARTAN. [Concomitant]
     Active Substance: VALSARTAN
  7. TEMAZEPAM. [Concomitant]
     Active Substance: TEMAZEPAM

REACTIONS (1)
  - Dyspnoea [None]
